FAERS Safety Report 4666586-7 (Version None)
Quarter: 2005Q2

REPORT INFORMATION
  Report Type: 
  Country: None (occurrence: None)
  Receive Date: 20050518
  Receipt Date: 20050505
  Transmission Date: 20051028
  Serious: Yes (Hospitalization, Other)
  Sender: FDA-Public Use
  Company Number: 2005071030

PATIENT
  Age: 52 Year
  Sex: Female
  Weight: 70.3075 kg

DRUGS (2)
  1. CELEBREX [Suspect]
     Indication: PAIN
     Dosage: 600 MG (2 IN 1 D), ORAL
     Route: 048
     Dates: start: 20041124, end: 20050101
  2. IBUPROFEN [Concomitant]

REACTIONS (7)
  - ARTHRALGIA [None]
  - DEEP VEIN THROMBOSIS [None]
  - PAIN [None]
  - PLEURISY [None]
  - PULMONARY EMBOLISM [None]
  - SCIATICA [None]
  - TREATMENT NONCOMPLIANCE [None]
